FAERS Safety Report 6441715-3 (Version None)
Quarter: 2009Q4

REPORT INFORMATION
  Report Type: 
  Country: None (occurrence: None)
  Receive Date: 20091116
  Receipt Date: 20091104
  Transmission Date: 20100525
  Serious: Yes (Other)
  Sender: FDA-Public Use
  Company Number: US-PFIZER INC-2005141885

PATIENT
  Sex: Male
  Weight: 99.8 kg

DRUGS (6)
  1. GLUCOTROL XL [Interacting]
     Indication: DIABETES MELLITUS
     Route: 048
  2. GLUCOTROL [Suspect]
  3. ACTOS [Interacting]
     Indication: DIABETES MELLITUS
     Route: 048
  4. METFORMIN HCL [Concomitant]
     Route: 048
  5. PROGESTERONE [Concomitant]
     Route: 065
  6. CHROMIUM PICOLINATE [Concomitant]
     Route: 065

REACTIONS (11)
  - BEDRIDDEN [None]
  - BLOOD GLUCOSE INCREASED [None]
  - DRUG INEFFECTIVE [None]
  - DRUG INTERACTION [None]
  - DRUG INTOLERANCE [None]
  - DYSPNOEA [None]
  - EAR HAEMORRHAGE [None]
  - IMMUNE SYSTEM DISORDER [None]
  - JAW DISORDER [None]
  - MUSCULAR WEAKNESS [None]
  - NASOPHARYNGITIS [None]
